FAERS Safety Report 24720725 (Version 1)
Quarter: 2024Q4

REPORT INFORMATION
  Report Type: Spontaneous
  Country: CN (occurrence: CN)
  Receive Date: 20241211
  Receipt Date: 20241211
  Transmission Date: 20250114
  Serious: Yes (Hospitalization)
  Sender: ROCHE
  Company Number: CN-ROCHE-10000146763

PATIENT
  Age: 61 Year
  Sex: Female
  Weight: 58 kg

DRUGS (5)
  1. TRASTUZUMAB [Suspect]
     Active Substance: TRASTUZUMAB
     Indication: Breast cancer
     Route: 050
     Dates: start: 20241012, end: 20241012
  2. PERTUZUMAB [Suspect]
     Active Substance: PERTUZUMAB
     Indication: Breast cancer
     Dosage: THE PATIENT PREVIOUSLY RECEIVED PERTUZUMAB INJECTION AND DEVELOPED?MYELOSUPPRESSION (THE THERAPY DET
     Route: 065
  3. TRASTUZUMAB [Suspect]
     Active Substance: TRASTUZUMAB
     Indication: Breast cancer
     Dosage: THE PATIENT PREVIOUSLY RECEIVED TRASTUZUMAB INJECTION AND DEVELOPED?MYELOSUPPRESSION (THE THERAPY DE
     Route: 065
  4. CARBOPLATIN [Suspect]
     Active Substance: CARBOPLATIN
     Indication: Breast cancer
     Dosage: THE PATIENT PREVIOUSLY RECEIVED CARBOPLATIN INJECTION AND DEVELOPED MYELOSUPPRESSION (THE THERAPY DE
     Route: 042
     Dates: start: 20241013, end: 20241013
  5. DOCETAXEL [Suspect]
     Active Substance: DOCETAXEL
     Indication: Breast cancer
     Dosage: THE PATIENT PREVIOUSLY RECEIVED DOCETAXEL INJECTION AND DEVELOPED MYELOSUPPRESSION (THE THERAPY DETA
     Route: 042
     Dates: start: 20241013, end: 20241013

REACTIONS (5)
  - Myelosuppression [Recovering/Resolving]
  - Decreased appetite [Not Recovered/Not Resolved]
  - Listless [Not Recovered/Not Resolved]
  - Bone pain [Not Recovered/Not Resolved]
  - Abdominal pain [Not Recovered/Not Resolved]

NARRATIVE: CASE EVENT DATE: 20241018
